FAERS Safety Report 9281382 (Version 6)
Quarter: 2014Q2

REPORT INFORMATION
  Report Type: Spontaneous
  Country: DE (occurrence: None)
  Receive Date: 20130502
  Receipt Date: 20140409
  Transmission Date: 20141212
  Serious: Yes (Hospitalization)
  Sender: FDA-Public Use
  Company Number: SYM-2013-03208

PATIENT
  Age: 71 Year
  Sex: Male

DRUGS (8)
  1. 5-FU [Suspect]
     Indication: COLORECTAL CANCER METASTATIC
     Route: 040
     Dates: start: 20130402, end: 20130402
  2. AFLIBERCEPT [Suspect]
     Indication: COLORECTAL CANCER METASTATIC
     Dosage: INTRAVENOUS (NOT OTHERWISE SPECIFIED)?
     Route: 042
     Dates: start: 20130402, end: 20130402
  3. IRINOTECAN [Suspect]
     Indication: COLORECTAL CANCER METASTATIC
     Dosage: INTRAVENOUS (NOT OTHERWISE SPECIFIED)?
     Route: 042
     Dates: start: 20130402, end: 20130402
  4. LEUCOVORIN (FOLINIC ACID) (SOLUTION FOR INFUSION) (FOLINIC ACID) [Suspect]
     Indication: COLORECTAL CANCER METASTATIC
     Dosage: INTRAVENOUS, (NOT OTHERWISE SPECIFIED)?
     Route: 042
     Dates: start: 20130402, end: 20130402
  5. ARIXTRA [Concomitant]
  6. CORTICOSTEROIDS (CORTICOSTEROIDS) [Concomitant]
  7. SPIRIVA [Concomitant]
  8. GRANISETRON (GRANISETRON) (GRANISETRON) [Concomitant]

REACTIONS (2)
  - Pneumonia [None]
  - Therapy cessation [None]
